FAERS Safety Report 11822896 (Version 1)
Quarter: 2015Q4

REPORT INFORMATION
  Report Type: Spontaneous
  Country: US (occurrence: US)
  Receive Date: 20151210
  Receipt Date: 20151210
  Transmission Date: 20160305
  Serious: No
  Sender: FDA-Public Use
  Company Number: US-JNJFOC-20150623444

PATIENT
  Sex: Female

DRUGS (10)
  1. CALCIUM [Concomitant]
     Active Substance: CALCIUM
  2. IMBRUVICA [Suspect]
     Active Substance: IBRUTINIB
     Indication: CHRONIC LYMPHOCYTIC LEUKAEMIA
     Route: 048
     Dates: start: 20150424
  3. VITAMINS [Concomitant]
     Active Substance: VITAMINS
  4. ANTIOXIDANT NOS [Concomitant]
  5. ACYCLOVIR. [Concomitant]
     Active Substance: ACYCLOVIR
  6. PROBIOTIC [Concomitant]
     Active Substance: PROBIOTICS NOS
  7. ALLOPURINOL. [Concomitant]
     Active Substance: ALLOPURINOL
  8. VITAMIN D [Concomitant]
     Active Substance: CHOLECALCIFEROL
  9. VITAMIN C [Concomitant]
     Active Substance: ASCORBIC ACID
  10. UBIDECARENONE [Concomitant]
     Active Substance: UBIDECARENONE

REACTIONS (6)
  - White blood cell count increased [Unknown]
  - Abdominal discomfort [Recovered/Resolved]
  - Pain [Unknown]
  - Mood altered [Unknown]
  - Fatigue [Unknown]
  - Ecchymosis [Unknown]
